FAERS Safety Report 7290779-6 (Version None)
Quarter: 2011Q1

REPORT INFORMATION
  Report Type: 
  Country: None (occurrence: None)
  Receive Date: 20110214
  Receipt Date: 20110207
  Transmission Date: 20110831
  Serious: Yes (Hospitalization)
  Sender: FDA-Public Use
  Company Number: US-ALEXION-A201001619

PATIENT
  Sex: Female

DRUGS (21)
  1. PROGRAF [Concomitant]
     Dosage: 4 MG, BID
     Route: 048
  2. CITRACAL PLUS [Concomitant]
     Dosage: 630 MG, BID
     Route: 048
  3. NYSTATIN [Concomitant]
     Dosage: 20 MG, QD
     Route: 048
  4. VALCYTE [Concomitant]
     Dosage: 450 MG, QD
     Route: 048
  5. CATAPRES                           /00171101/ [Concomitant]
     Dosage: 0.3 MG, QW
     Route: 061
  6. SOLIRIS [Suspect]
     Indication: PAROXYSMAL NOCTURNAL HAEMOGLOBINURIA
     Dosage: 900 MG, QW
     Route: 042
  7. NEXIUM [Concomitant]
     Dosage: 40 MG, QD
     Route: 048
  8. HYDROCORTISONE [Concomitant]
     Dosage: UNK, QD
     Route: 048
  9. TYLENOL (CAPLET) [Concomitant]
     Dosage: 650 MG, PRE SOLIRIS
     Route: 048
  10. PROCRIT                            /00909301/ [Concomitant]
     Dosage: 1000 UNITS, QW
     Route: 058
  11. PENICILLIN [Concomitant]
     Dosage: 500 MG, QD
     Route: 048
  12. ZOLOFT [Concomitant]
     Dosage: 150 MG, QD
     Route: 048
  13. VITAMIN A [Concomitant]
     Dosage: 5000 UNITS, 3XWK
     Route: 048
  14. VITAMIN B6 [Concomitant]
     Dosage: UNK, 3XWK
     Route: 048
  15. LOPRESSOR [Concomitant]
     Dosage: 50 MG, PRN
     Route: 048
  16. COUMADIN [Concomitant]
     Dosage: 5 MG, QD
     Route: 048
     Dates: start: 20110101
  17. BACTRIM [Concomitant]
     Dosage: 1 TAB, M, W, F
     Route: 048
  18. URSODIOL [Concomitant]
     Dosage: 300 MG, TID
     Route: 048
  19. MAGNESIUM [Concomitant]
     Dosage: 100 MG, TID
     Route: 048
  20. COUMADIN [Concomitant]
     Dosage: 4 MG, QD
     Route: 048
  21. BENADRYL [Concomitant]
     Dosage: 50 MG, PRE SOLIRIS
     Route: 042

REACTIONS (3)
  - MALAISE [None]
  - RENAL FAILURE ACUTE [None]
  - BODY TEMPERATURE INCREASED [None]
